FAERS Safety Report 7201367-1 (Version None)
Quarter: 2010Q4

REPORT INFORMATION
  Report Type: 
  Country: None (occurrence: None)
  Receive Date: 20101229
  Receipt Date: 20101217
  Transmission Date: 20110411
  Serious: Yes (Other)
  Sender: FDA-Public Use
  Company Number: JP-JNJFOC-20080901920

PATIENT
  Sex: Female
  Weight: 52 kg

DRUGS (4)
  1. REMICADE [Suspect]
     Indication: CROHN'S DISEASE
     Route: 042
  2. REMICADE [Suspect]
     Dosage: 2 INFUSIONS ON UNKNOWN DATES
     Route: 042
  3. REMICADE [Suspect]
     Route: 042
  4. PENTASA [Suspect]
     Indication: CROHN'S DISEASE
     Route: 048

REACTIONS (3)
  - DERMATITIS ATOPIC [None]
  - DERMATITIS PSORIASIFORM [None]
  - RASH GENERALISED [None]
